FAERS Safety Report 9728356 (Version 1)
Quarter: 2013Q4

REPORT INFORMATION
  Report Type: Spontaneous
  Country: CN (occurrence: CN)
  Receive Date: 20131204
  Receipt Date: 20131204
  Transmission Date: 20140711
  Serious: Yes (Life-Threatening, Hospitalization, Other)
  Sender: FDA-Public Use
  Company Number: CN-JNJFOC-20131117261

PATIENT
  Age: 54 Year
  Sex: Female

DRUGS (2)
  1. TOPIRAMATE [Suspect]
     Indication: EPILEPSY
     Route: 048
  2. TOPIRAMATE [Suspect]
     Indication: EPILEPSY
     Route: 048

REACTIONS (9)
  - Ventricular fibrillation [Recovered/Resolved]
  - Blood potassium decreased [Unknown]
  - Convulsion [Recovered/Resolved]
  - Dizziness [Recovered/Resolved]
  - Nausea [Recovered/Resolved]
  - Respiration abnormal [Recovered/Resolved]
  - Ventricular tachycardia [Recovered/Resolved]
  - Blood pressure immeasurable [Recovered/Resolved]
  - Treatment noncompliance [Unknown]
